FAERS Safety Report 11138838 (Version 1)
Quarter: 2015Q2

REPORT INFORMATION
  Report Type: Spontaneous
  Country: US (occurrence: US)
  Receive Date: 20150527
  Receipt Date: 20150527
  Transmission Date: 20150821
  Serious: Yes (Other)
  Sender: FDA-Public Use
  Company Number: US-TEVA-565505ACC

PATIENT
  Age: 26 Year
  Sex: Female
  Weight: 60.84 kg

DRUGS (5)
  1. TRAZODONE [Concomitant]
     Active Substance: TRAZODONE HYDROCHLORIDE
     Dosage: 25 MILLIGRAM DAILY;
  2. LAMOTRIGINE. [Concomitant]
     Active Substance: LAMOTRIGINE
     Dosage: 200 MILLIGRAM DAILY;
  3. CYMBALTA [Concomitant]
     Active Substance: DULOXETINE HYDROCHLORIDE
     Dosage: 30 MILLIGRAM DAILY;
  4. PARAGARD T 380A [Suspect]
     Active Substance: COPPER
     Indication: CONTRACEPTION
     Route: 015
     Dates: start: 20150429, end: 20150518
  5. BUPROPION [Concomitant]
     Active Substance: BUPROPION
     Dosage: 150 MILLICURIES DAILY;

REACTIONS (3)
  - Device expulsion [Recovered/Resolved]
  - Vaginal discharge [Not Recovered/Not Resolved]
  - Actinomycosis [Not Recovered/Not Resolved]

NARRATIVE: CASE EVENT DATE: 20150518
